FAERS Safety Report 7543149-7 (Version None)
Quarter: 2011Q2

REPORT INFORMATION
  Report Type: 
  Country: None (occurrence: None)
  Receive Date: 20110524
  Receipt Date: 20110131
  Transmission Date: 20111010
  Serious: No
  Sender: FDA-Public Use
  Company Number: 024611

PATIENT
  Sex: Female
  Weight: 53.1 kg

DRUGS (2)
  1. AZATHIOPRINE [Concomitant]
  2. CIMZIA [Suspect]
     Indication: CROHN'S DISEASE
     Dosage: (400 MG 1X/4 WEEKS SUBCUTANEOUS)
     Route: 058
     Dates: start: 20100810

REACTIONS (6)
  - ABDOMINAL PAIN [None]
  - BOWEL MOVEMENT IRREGULARITY [None]
  - MALAISE [None]
  - OROPHARYNGEAL PAIN [None]
  - LETHARGY [None]
  - ABDOMINAL PAIN UPPER [None]
